FAERS Safety Report 5810776-4 (Version None)
Quarter: 2008Q3

REPORT INFORMATION
  Report Type: 
  Country: None (occurrence: None)
  Receive Date: 20080710
  Receipt Date: 20080626
  Transmission Date: 20090109
  Serious: Yes (Hospitalization)
  Sender: FDA-Public Use
  Company Number: 2008BI016509

PATIENT
  Age: 49 Year
  Sex: Female

DRUGS (6)
  1. AVONEX [Suspect]
     Dosage: 30 UG; QW; IM; 30 UG; QW; IM
     Route: 030
     Dates: start: 20020629, end: 20030512
  2. AVONEX [Suspect]
     Dosage: 30 UG; QW; IM; 30 UG; QW; IM
     Route: 030
     Dates: start: 20030801, end: 20080216
  3. BENICAR [Suspect]
  4. PLAVIX [Concomitant]
  5. METAPROLOL [Concomitant]
  6. NITROGLYCERIN [Concomitant]

REACTIONS (2)
  - CARDIAC SEPTAL DEFECT [None]
  - MYOCARDIAL INFARCTION [None]
